FAERS Safety Report 23242625 (Version 1)
Quarter: 2023Q4

REPORT INFORMATION
  Report Type: Spontaneous
  Country: NL (occurrence: NL)
  Receive Date: 20231129
  Receipt Date: 20231129
  Transmission Date: 20240110
  Serious: Yes (Hospitalization)
  Sender: FDA-Public Use
  Company Number: None

PATIENT
  Age: 81 Year
  Sex: Female
  Weight: 75 kg

DRUGS (9)
  1. PREGABALIN [Suspect]
     Active Substance: PREGABALIN
     Indication: Product used for unknown indication
     Dosage: 75 MILLIGRAM, BID (2X PER DAY 1 PIECE)
     Route: 065
     Dates: start: 20231007, end: 20231007
  2. ACETAMINOPHEN [Concomitant]
     Active Substance: ACETAMINOPHEN
     Dosage: TABLET, 500 MG (MILLIGRAM)
     Route: 065
  3. BECLOMETASONE;FORMOTEROL;GLYCOPYRRONIUM [Concomitant]
     Dosage: AEROSOL, 87/5/9 ?G/DOSIS (MICROGRAM PER DOSIS)
     Route: 065
  4. CLOPIDOGREL [Concomitant]
     Active Substance: CLOPIDOGREL BISULFATE
     Dosage: TABLET, 75 MG (MILLIGRAM)
     Route: 065
  5. METOPROLOL SUCCINATE [Concomitant]
     Active Substance: METOPROLOL SUCCINATE
     Dosage: CONTROLLED-RELEASE TABLET, 50 MG (MILLIGRAMS)
     Route: 065
  6. IPRATROPIUM [Concomitant]
     Active Substance: IPRATROPIUM
     Dosage: AEROSOL, 20 ?G/DOSIS (MICROGRAM PER DOSIS)
     Route: 065
  7. PANTOPRAZOLE SODIUM [Concomitant]
     Active Substance: PANTOPRAZOLE SODIUM
     Dosage: GASTRO RESISTANT TABLET, 40 MG (MILLIGRAM)
     Route: 065
  8. PREDNISOLONE [Concomitant]
     Active Substance: PREDNISOLONE
     Dosage: TABLET, 5 MG (MILLIGRAM)
     Route: 065
  9. CHOLECALCIFEROL [Concomitant]
     Active Substance: CHOLECALCIFEROL
     Dosage: CAPSULE, 800 UNITS
     Route: 065

REACTIONS (1)
  - Circulatory collapse [Recovered/Resolved]
